FAERS Safety Report 6003882-5 (Version None)
Quarter: 2008Q4

REPORT INFORMATION
  Report Type: 
  Country: None (occurrence: None)
  Receive Date: 20081212
  Receipt Date: 20081201
  Transmission Date: 20090506
  Serious: Yes (Hospitalization)
  Sender: FDA-Public Use
  Company Number: 1000002957

PATIENT
  Age: 70 Year
  Sex: Male

DRUGS (6)
  1. CITALOPRAM HYDROBROMIDE [Suspect]
     Dosage: (20 MG), ORAL
     Route: 048
     Dates: start: 20080101
  2. CYCLOSPORINE [Suspect]
     Dosage: ORAL
     Route: 048
     Dates: start: 20041001
  3. CLOPIDOGREL [Concomitant]
  4. ENALAPRIL MALEATE [Concomitant]
  5. COROPRES (TABLETS) [Concomitant]
  6. EVEROLIMUS (TABLETS) [Concomitant]

REACTIONS (2)
  - DEMYELINATION [None]
  - PARKINSONISM [None]
